FAERS Safety Report 20484105 (Version 1)
Quarter: 2022Q1

REPORT INFORMATION
  Report Type: Spontaneous
  Country: US (occurrence: None)
  Receive Date: 20220216
  Receipt Date: 20220216
  Transmission Date: 20220423
  Serious: No
  Sender: FDA-Public Use
  Company Number: None

PATIENT
  Age: 32 Year
  Sex: Female
  Weight: 77.5 kg

DRUGS (1)
  1. HIZENTRA [Suspect]
     Active Substance: HUMAN IMMUNOGLOBULIN G
     Indication: Dermatomyositis
     Dosage: FREQUENCY : TWICE A WEEK;?
     Route: 058
     Dates: start: 20210405

REACTIONS (3)
  - Recalled product administered [None]
  - Infusion site pruritus [None]
  - Infusion site swelling [None]

NARRATIVE: CASE EVENT DATE: 20211208
